FAERS Safety Report 8503913-4 (Version None)
Quarter: 2012Q3

REPORT INFORMATION
  Report Type: 
  Country: None (occurrence: None)
  Receive Date: 20120711
  Receipt Date: 20120709
  Transmission Date: 20120928
  Serious: Yes (Other)
  Sender: FDA-Public Use
  Company Number: US-BAYER-2012-058113

PATIENT
  Age: 51 Year
  Sex: Male

DRUGS (2)
  1. NEXAVAR [Suspect]
     Indication: HEPATIC NEOPLASM MALIGNANT
     Dosage: 200 MG, BID
     Dates: start: 20120608
  2. DIURETICS [Concomitant]

REACTIONS (11)
  - DECREASED APPETITE [None]
  - APHAGIA [None]
  - RASH MACULO-PAPULAR [None]
  - PRURITUS GENITAL [None]
  - BLISTER [None]
  - NAUSEA [None]
  - RASH [None]
  - PRURITUS [None]
  - FATIGUE [None]
  - SKIN EXFOLIATION [None]
  - FEELING HOT [None]
